FAERS Safety Report 14200466 (Version 1)
Quarter: 2017Q4

REPORT INFORMATION
  Report Type: Spontaneous
  Country: US (occurrence: US)
  Receive Date: 20171117
  Receipt Date: 20171117
  Transmission Date: 20180321
  Serious: Yes (Other)
  Sender: FDA-Public Use
  Company Number: US-GLAXOSMITHKLINE-US2017174755

PATIENT
  Age: 86 Year
  Sex: Female

DRUGS (1)
  1. GAVISCON EXTRA STRENGTH [Suspect]
     Active Substance: ALUMINUM HYDROXIDE\MAGNESIUM CARBONATE
     Indication: DYSPEPSIA
     Dosage: UNK
     Dates: start: 20171108

REACTIONS (2)
  - Haematochezia [Unknown]
  - Expired product administered [Unknown]

NARRATIVE: CASE EVENT DATE: 20171113
